FAERS Safety Report 8353796-0 (Version None)
Quarter: 2012Q2

REPORT INFORMATION
  Report Type: 
  Country: None (occurrence: None)
  Receive Date: 20120511
  Receipt Date: 20111114
  Transmission Date: 20120825
  Serious: No
  Sender: FDA-Public Use
  Company Number: US-GLAXOSMITHKLINE-A0954741A

PATIENT
  Sex: Female

DRUGS (3)
  1. TYKERB [Suspect]
     Indication: PRODUCT USED FOR UNKNOWN INDICATION
     Dosage: 250MG PER DAY
     Route: 048
  2. TRILEPTAL [Concomitant]
  3. LETROZOLE [Concomitant]

REACTIONS (2)
  - RASH [None]
  - DYSURIA [None]
